FAERS Safety Report 25043862 (Version 1)
Quarter: 2025Q1

REPORT INFORMATION
  Report Type: Spontaneous
  Country: US (occurrence: US)
  Receive Date: 20250306
  Receipt Date: 20250306
  Transmission Date: 20250409
  Serious: No
  Sender: Kenvue
  Company Number: US-KENVUE-20250201567

PATIENT
  Sex: Male

DRUGS (5)
  1. IMODIUM [Suspect]
     Active Substance: LOPERAMIDE HYDROCHLORIDE
     Indication: Diarrhoea
     Route: 065
  2. TYVASO [Concomitant]
     Active Substance: TREPROSTINIL
     Indication: Pulmonary arterial hypertension
     Dosage: 48 MICROGRAM, FOUR TIME A DAY
  3. TYVASO [Concomitant]
     Active Substance: TREPROSTINIL
     Dosage: 54 MICROGRAM, FOUR TIME A DAY
  4. TYVASO [Concomitant]
     Active Substance: TREPROSTINIL
     Dates: start: 202412
  5. OFEV [Concomitant]
     Active Substance: NINTEDANIB
     Indication: Pulmonary fibrosis
     Route: 065

REACTIONS (1)
  - Therapeutic product effect incomplete [Unknown]
